FAERS Safety Report 25764937 (Version 1)
Quarter: 2025Q3

REPORT INFORMATION
  Report Type: Spontaneous
  Country: US (occurrence: US)
  Receive Date: 20250905
  Receipt Date: 20250905
  Transmission Date: 20251020
  Serious: Yes (Hospitalization, Other)
  Sender: SANDOZ
  Company Number: US-SANDOZ-SDZ2025US064106

PATIENT
  Age: 17 Year
  Sex: Male
  Weight: 46 kg

DRUGS (7)
  1. AZITHROMYCIN [Suspect]
     Active Substance: AZITHROMYCIN
     Dosage: 500 MG, QD
     Route: 065
     Dates: start: 202501
  2. AZITHROMYCIN [Suspect]
     Active Substance: AZITHROMYCIN
     Indication: Disseminated mycobacterium avium complex infection
     Route: 065
     Dates: start: 202209, end: 202310
  3. ETHAMBUTOL [Suspect]
     Active Substance: ETHAMBUTOL HYDROCHLORIDE
     Dosage: 600 MG, QD
     Route: 065
     Dates: start: 202501
  4. ETHAMBUTOL [Suspect]
     Active Substance: ETHAMBUTOL HYDROCHLORIDE
     Indication: Disseminated mycobacterium avium complex infection
     Route: 065
     Dates: start: 202209, end: 202310
  5. RIFAMPIN [Suspect]
     Active Substance: RIFAMPIN
     Dosage: 600 MG, QD
     Route: 065
     Dates: start: 202501
  6. RIFAMPIN [Suspect]
     Active Substance: RIFAMPIN
     Indication: Disseminated mycobacterium avium complex infection
     Route: 065
     Dates: start: 202209, end: 202310
  7. JAKAFI [Concomitant]
     Active Substance: RUXOLITINIB
     Indication: Product used for unknown indication
     Route: 065

REACTIONS (4)
  - Disseminated mycobacterium avium complex infection [Unknown]
  - Disease progression [Unknown]
  - Lymphadenopathy [Unknown]
  - Inflammation [Unknown]
